FAERS Safety Report 7476436-1 (Version None)
Quarter: 2011Q2

REPORT INFORMATION
  Report Type: 
  Country: None (occurrence: None)
  Receive Date: 20110512
  Receipt Date: 20110503
  Transmission Date: 20111010
  Serious: Yes (Other)
  Sender: FDA-Public Use
  Company Number: US-ASTRAZENECA-2011SE26087

PATIENT
  Sex: Female

DRUGS (1)
  1. PULMICORT [Suspect]
     Dosage: ONE AMPULE OF THE 0.5 MG/2 ML DAILY
     Route: 055

REACTIONS (6)
  - OFF LABEL USE [None]
  - MENTAL RETARDATION [None]
  - CHOKING [None]
  - CEREBRAL PALSY [None]
  - APHASIA [None]
  - MICROCEPHALY [None]
